FAERS Safety Report 11317575 (Version 2)
Quarter: 2016Q2

REPORT INFORMATION
  Report Type: Report from Study
  Country: JP (occurrence: JP)
  Receive Date: 20150728
  Receipt Date: 20160610
  Transmission Date: 20160815
  Serious: Yes (Hospitalization)
  Sender: FDA-Public Use
  Company Number: US-ASTRAZENECA-2015SE71845

PATIENT
  Age: 1 Year
  Sex: Male
  Weight: 10.8 kg

DRUGS (29)
  1. BACTRAMIN [Concomitant]
     Active Substance: SULFAMETHOXAZOLE\TRIMETHOPRIM
     Indication: PRODUCT USED FOR UNKNOWN INDICATION
     Route: 048
     Dates: start: 20150210, end: 20150311
  2. ARGININE HYDROCHLORIDE [Concomitant]
     Active Substance: ARGININE HYDROCHLORIDE
     Indication: PRODUCT USED FOR UNKNOWN INDICATION
     Route: 048
     Dates: start: 20140819
  3. SYNAGIS [Suspect]
     Active Substance: PALIVIZUMAB
     Indication: PERITONEAL DIALYSIS
     Dosage: 1.5 ML
     Route: 030
     Dates: start: 20141211, end: 20141211
  4. SYNAGIS [Suspect]
     Active Substance: PALIVIZUMAB
     Indication: PERITONEAL DIALYSIS
     Dosage: 1.5 ML
     Route: 030
     Dates: start: 20150108, end: 20150108
  5. ALFACALCIDOL [Concomitant]
     Active Substance: ALFACALCIDOL
     Indication: PRODUCT USED FOR UNKNOWN INDICATION
     Route: 048
     Dates: start: 20140819
  6. ALLOPURINOL. [Concomitant]
     Active Substance: ALLOPURINOL
     Indication: PRODUCT USED FOR UNKNOWN INDICATION
     Route: 048
     Dates: start: 20140819
  7. CARBOCISTEINE [Concomitant]
     Active Substance: CARBOCYSTEINE
     Indication: PRODUCT USED FOR UNKNOWN INDICATION
     Route: 048
     Dates: start: 20141006, end: 20141023
  8. SYNAGIS [Suspect]
     Active Substance: PALIVIZUMAB
     Indication: PERITONEAL DIALYSIS
     Dosage: 1.5 ML
     Route: 030
     Dates: start: 20141106, end: 20141106
  9. BAKTAR [Concomitant]
     Active Substance: SULFAMETHOXAZOLE\TRIMETHOPRIM
     Indication: PRODUCT USED FOR UNKNOWN INDICATION
     Dates: start: 20150312
  10. DARBEPOETIN ALFA [Concomitant]
     Active Substance: DARBEPOETIN ALFA
     Indication: PRODUCT USED FOR UNKNOWN INDICATION
     Dosage: EVERY TWO WEEKS
     Route: 050
  11. SYNAGIS [Suspect]
     Active Substance: PALIVIZUMAB
     Indication: HAEMODIALYSIS
     Dosage: 1.5 ML
     Route: 030
     Dates: start: 20141106, end: 20141106
  12. SYNAGIS [Suspect]
     Active Substance: PALIVIZUMAB
     Indication: HAEMODIALYSIS
     Dosage: 1.5 ML
     Route: 030
     Dates: start: 20150305, end: 20150305
  13. LANTHANUM CARBONATE. [Concomitant]
     Active Substance: LANTHANUM CARBONATE
     Indication: PRODUCT USED FOR UNKNOWN INDICATION
     Route: 048
     Dates: start: 20140819
  14. SYNAGIS [Suspect]
     Active Substance: PALIVIZUMAB
     Indication: HAEMODIALYSIS
     Dosage: 1.5 ML
     Route: 030
     Dates: start: 20140918, end: 20140918
  15. SYNAGIS [Suspect]
     Active Substance: PALIVIZUMAB
     Indication: HAEMODIALYSIS
     Dosage: 1.5 ML
     Route: 030
     Dates: start: 20141211, end: 20141211
  16. BAKTAR [Concomitant]
     Active Substance: SULFAMETHOXAZOLE\TRIMETHOPRIM
     Indication: PRODUCT USED FOR UNKNOWN INDICATION
     Dates: start: 20141002, end: 20150209
  17. SODIUM BICARBONATE. [Concomitant]
     Active Substance: SODIUM BICARBONATE
     Indication: PRODUCT USED FOR UNKNOWN INDICATION
     Route: 048
     Dates: start: 20140819
  18. BACTRAMIN [Concomitant]
     Active Substance: SULFAMETHOXAZOLE\TRIMETHOPRIM
     Indication: PRODUCT USED FOR UNKNOWN INDICATION
     Route: 048
     Dates: start: 20140829, end: 20140918
  19. CEFACLOR. [Concomitant]
     Active Substance: CEFACLOR
     Indication: PRODUCT USED FOR UNKNOWN INDICATION
     Route: 048
     Dates: start: 20140918, end: 20141002
  20. NORFLOXACIN [Concomitant]
     Active Substance: NORFLOXACIN
     Indication: PRODUCT USED FOR UNKNOWN INDICATION
     Route: 048
     Dates: start: 20141120, end: 20150213
  21. SYNAGIS [Suspect]
     Active Substance: PALIVIZUMAB
     Indication: HAEMODIALYSIS
     Dosage: 1.5 ML
     Route: 030
     Dates: start: 20150108, end: 20150108
  22. SYNAGIS [Suspect]
     Active Substance: PALIVIZUMAB
     Indication: PERITONEAL DIALYSIS
     Dosage: 1.5 ML
     Route: 030
     Dates: start: 20150305, end: 20150305
  23. TULOBUTEROL [Concomitant]
     Active Substance: TULOBUTEROL
     Indication: PRODUCT USED FOR UNKNOWN INDICATION
     Route: 062
     Dates: start: 20141225, end: 20150108
  24. SYNAGIS [Suspect]
     Active Substance: PALIVIZUMAB
     Indication: PERITONEAL DIALYSIS
     Dosage: 1.5 ML
     Route: 030
     Dates: start: 20140918, end: 20140918
  25. SODIUM CHLORIDE. [Concomitant]
     Active Substance: SODIUM CHLORIDE
     Indication: PRODUCT USED FOR UNKNOWN INDICATION
     Route: 048
     Dates: start: 20140819
  26. BAKTAR [Concomitant]
     Active Substance: SULFAMETHOXAZOLE\TRIMETHOPRIM
     Indication: PRODUCT USED FOR UNKNOWN INDICATION
     Route: 048
     Dates: start: 20140821, end: 20140828
  27. SULFAMETHOXAZOLE AND TRIMETHOPRIM [Concomitant]
     Active Substance: SULFAMETHOXAZOLE\TRIMETHOPRIM
     Indication: PRODUCT USED FOR UNKNOWN INDICATION
     Route: 048
     Dates: start: 20150210, end: 20150311
  28. LEVOTHYROXINE SODIUM. [Concomitant]
     Active Substance: LEVOTHYROXINE SODIUM
     Indication: PRODUCT USED FOR UNKNOWN INDICATION
     Route: 048
     Dates: start: 20140821, end: 20150210
  29. AMLODIPINE BESILATE [Concomitant]
     Active Substance: AMLODIPINE BESYLATE
     Indication: PRODUCT USED FOR UNKNOWN INDICATION
     Route: 048

REACTIONS (3)
  - Device related infection [Recovered/Resolved]
  - Pyrexia [Recovered/Resolved]
  - Gastroenteritis [Recovered/Resolved]

NARRATIVE: CASE EVENT DATE: 20141016
